FAERS Safety Report 23676117 (Version 1)
Quarter: 2024Q1

REPORT INFORMATION
  Report Type: Spontaneous
  Country: US (occurrence: US)
  Receive Date: 20240327
  Receipt Date: 20240327
  Transmission Date: 20240410
  Serious: No
  Sender: FDA-Public Use
  Company Number: US-SANDOZ-SDZ2024US031372

PATIENT
  Sex: Male
  Weight: 113.85 kg

DRUGS (1)
  1. LEVOFLOXACIN [Suspect]
     Active Substance: LEVOFLOXACIN
     Indication: Product used for unknown indication
     Dosage: 750 MG
     Route: 065
     Dates: start: 202311

REACTIONS (6)
  - Blister [Unknown]
  - Disease progression [Unknown]
  - Inflammation [Unknown]
  - Pyrexia [Unknown]
  - Pigmentation disorder [Unknown]
  - Pain [Unknown]
